FAERS Safety Report 19674257 (Version 1)
Quarter: 2021Q3

REPORT INFORMATION
  Report Type: Spontaneous
  Country: AU (occurrence: AU)
  Receive Date: 20210809
  Receipt Date: 20210809
  Transmission Date: 20211014
  Serious: Yes (Hospitalization)
  Sender: FDA-Public Use
  Company Number: AU-BAUSCH-BL-2021-027252

PATIENT
  Age: 18 Year
  Sex: Female

DRUGS (2)
  1. ELIDEL [Suspect]
     Active Substance: PIMECROLIMUS
     Indication: ECZEMA
     Route: 065
     Dates: start: 202104
  2. ELIDEL [Suspect]
     Active Substance: PIMECROLIMUS
     Indication: DERMATITIS

REACTIONS (4)
  - Blister [Unknown]
  - Lip swelling [Unknown]
  - Rash [Unknown]
  - Dry skin [Unknown]

NARRATIVE: CASE EVENT DATE: 2021
